FAERS Safety Report 15034449 (Version 1)
Quarter: 2018Q2

REPORT INFORMATION
  Report Type: Spontaneous
  Country: TR (occurrence: TR)
  Receive Date: 20180620
  Receipt Date: 20180620
  Transmission Date: 20180711
  Serious: Yes (Life-Threatening)
  Sender: FDA-Public Use
  Company Number: TR-TEVA-2018-TR-912087

PATIENT
  Age: 31 Year
  Sex: Female

DRUGS (2)
  1. TADOCEL [Suspect]
     Active Substance: DOCETAXEL
     Indication: BREAST CANCER
     Dosage: TADOCEL 20 MG/1ML RTU CONCENTRATE FOR SOLUTION FOR INFUSION
     Route: 042
  2. DOXEL [DOCETAXEL] [Suspect]
     Active Substance: DOCETAXEL
     Indication: BREAST CANCER
     Route: 042

REACTIONS (5)
  - Chest pain [Recovered/Resolved]
  - Tachycardia [Recovered/Resolved]
  - Hypersensitivity [Recovered/Resolved]
  - Cyanosis [Recovered/Resolved]
  - Dyspnoea [Recovered/Resolved]

NARRATIVE: CASE EVENT DATE: 20180526
